FAERS Safety Report 6957434-0 (Version None)
Quarter: 2010Q3

REPORT INFORMATION
  Report Type: 
  Country: None (occurrence: None)
  Receive Date: 20100831
  Receipt Date: 20100817
  Transmission Date: 20110219
  Serious: Yes (Other)
  Sender: FDA-Public Use
  Company Number: GB-TYCO HEALTHCARE/MALLINCKRODT-T201001855

PATIENT
  Age: 37 Week

DRUGS (1)
  1. METHADOSE [Suspect]
     Dosage: UNK

REACTIONS (5)
  - ASTIGMATISM [None]
  - DEVELOPMENTAL DELAY [None]
  - HYPERMETROPIA [None]
  - NYSTAGMUS [None]
  - STRABISMUS [None]
